FAERS Safety Report 13898906 (Version 10)
Quarter: 2022Q1

REPORT INFORMATION
  Report Type: Report from Study
  Country: JP (occurrence: JP)
  Receive Date: 20170824
  Receipt Date: 20220106
  Transmission Date: 20220423
  Serious: Yes (Hospitalization, Other)
  Sender: FDA-Public Use
  Company Number: JP-VIIVHC-JP2017JPN128187AA

PATIENT
  Sex: Male

DRUGS (10)
  1. DOLUTEGRAVIR [Suspect]
     Active Substance: DOLUTEGRAVIR
     Indication: HIV infection
     Dosage: 50 MG, 1D
     Route: 048
     Dates: start: 20150422
  2. EPZICOM [Suspect]
     Active Substance: ABACAVIR SULFATE\LAMIVUDINE
     Indication: HIV infection
     Dosage: 1 DF, 1D
     Route: 048
     Dates: start: 20100415
  3. NORVIR [Suspect]
     Active Substance: RITONAVIR
     Indication: HIV infection
     Dosage: 100 MG, 1D
     Route: 048
     Dates: start: 20110512, end: 20120808
  4. NORVIR [Suspect]
     Active Substance: RITONAVIR
     Dosage: 100 MG, 1D
     Route: 048
     Dates: start: 20130808, end: 20150421
  5. DARUNAVIR [Concomitant]
     Active Substance: DARUNAVIR
     Indication: HIV infection
     Dosage: 800 MG, 1D
     Dates: start: 20111204, end: 20120808
  6. DARUNAVIR [Concomitant]
     Active Substance: DARUNAVIR
     Dosage: 800 MG, QD
     Dates: start: 20130808, end: 20150421
  7. POLITOSE [Concomitant]
     Indication: Diarrhoea
     Dosage: 1 DF, QD
     Dates: start: 20160707, end: 20190605
  8. LOPEMIN [Concomitant]
     Indication: Diarrhoea
     Dosage: 1 MG, QD
     Dates: start: 20160602
  9. CANDESARTAN [Concomitant]
     Active Substance: CANDESARTAN
     Indication: Hypertension
     Dosage: 4 MG, QD
     Dates: end: 20180516
  10. OLMESARTAN MEDOXOMIL [Concomitant]
     Active Substance: OLMESARTAN MEDOXOMIL
     Indication: Hypertension
     Dosage: UNK
     Dates: start: 20180517

REACTIONS (5)
  - Renal impairment [Unknown]
  - Beta 2 microglobulin urine increased [Unknown]
  - Hypertension [Recovering/Resolving]
  - Cellulitis [Recovered/Resolved]
  - Gastritis [Recovering/Resolving]

NARRATIVE: CASE EVENT DATE: 20090608
